FAERS Safety Report 6865582-9 (Version None)
Quarter: 2010Q3

REPORT INFORMATION
  Report Type: 
  Country: None (occurrence: None)
  Receive Date: 20100721
  Receipt Date: 20080424
  Transmission Date: 20110219
  Serious: No
  Sender: FDA-Public Use
  Company Number: US-PFIZER INC-2008037452

PATIENT
  Sex: Male
  Weight: 71.8 kg

DRUGS (4)
  1. CHANTIX [Suspect]
     Indication: SMOKING CESSATION THERAPY
     Dates: start: 20080423
  2. LYRICA [Concomitant]
     Indication: NERVE INJURY
  3. CYMBALTA [Concomitant]
  4. VICODIN [Concomitant]

REACTIONS (2)
  - FEELING JITTERY [None]
  - NAUSEA [None]
